FAERS Safety Report 8235358-9 (Version None)
Quarter: 2012Q1

REPORT INFORMATION
  Report Type: 
  Country: None (occurrence: None)
  Receive Date: 20120326
  Receipt Date: 20120316
  Transmission Date: 20120608
  Serious: Yes (Hospitalization)
  Sender: FDA-Public Use
  Company Number: US-PERRIGO-12US002315

PATIENT
  Sex: Male
  Weight: 72.562 kg

DRUGS (3)
  1. NAPROXEN (ALEVE) [Concomitant]
     Indication: HEADACHE
     Dosage: UNK, PRN
     Route: 048
  2. PSEUDEOPHEDRINE HCL [Suspect]
     Indication: PULMONARY CONGESTION
     Dosage: 120 MG, SINGLE
     Route: 048
     Dates: start: 20120304, end: 20120304
  3. PSEUDEOPHEDRINE HCL [Suspect]
     Indication: NASAL CONGESTION

REACTIONS (9)
  - HEMIPARESIS [None]
  - HYPOAESTHESIA [None]
  - CAROTID ARTERY THROMBOSIS [None]
  - ARTERIAL RUPTURE [None]
  - DYSGEUSIA [None]
  - PALPITATIONS [None]
  - FEELING ABNORMAL [None]
  - CEREBROVASCULAR ACCIDENT [None]
  - PHOTOPSIA [None]
